FAERS Safety Report 4661404-5 (Version None)
Quarter: 2005Q2

REPORT INFORMATION
  Report Type: 
  Country: None (occurrence: None)
  Receive Date: 20050513
  Receipt Date: 20050307
  Transmission Date: 20051028
  Serious: Yes (Death)
  Sender: FDA-Public Use
  Company Number: US-GLAXOSMITHKLINE-A0548645A

PATIENT
  Age: 85 Year
  Sex: Female
  Weight: 39.1 kg

DRUGS (3)
  1. PAXIL CR [Suspect]
     Indication: DEPRESSION
     Dosage: 25MG PER DAY
     Route: 048
     Dates: start: 20050101, end: 20050219
  2. CALCIUM GLUCONATE [Concomitant]
     Dosage: 600MG TWICE PER DAY
     Route: 048
  3. MULTI-VITAMINS [Concomitant]
     Dosage: 1U PER DAY
     Route: 048

REACTIONS (1)
  - SUDDEN DEATH [None]
